FAERS Safety Report 21136458 (Version 1)
Quarter: 2022Q3

REPORT INFORMATION
  Report Type: Spontaneous
  Country: FR (occurrence: FR)
  Receive Date: 20220727
  Receipt Date: 20220727
  Transmission Date: 20221027
  Serious: Yes (Other)
  Sender: FDA-Public Use
  Company Number: None

PATIENT
  Age: 66 Year
  Sex: Male
  Weight: 78 kg

DRUGS (9)
  1. PANTOPRAZOLE [Suspect]
     Active Substance: PANTOPRAZOLE
     Indication: Product used for unknown indication
     Dosage: UNIT DOSE: 20 MG, FREQUENCY TIME-1 DAY, DURATION-102 DAYS
     Dates: start: 20211105, end: 20220215
  2. ALPRAZOLAM [Suspect]
     Active Substance: ALPRAZOLAM
     Indication: Product used for unknown indication
     Dosage: UNIT DOSE: 0.5 MG, FREQUENCY TIME-1 DAY, DURATION-74 DAYS
     Dates: start: 20210826, end: 20211108
  3. CLOZAPINE [Suspect]
     Active Substance: CLOZAPINE
     Indication: Product used for unknown indication
     Dosage: UNIT DOSE: 25 MG, FREQUENCY TIME-1 DAY, DURATION-81 DAYS
     Dates: start: 20210906, end: 20211126
  4. PERINDOPRIL [Suspect]
     Active Substance: PERINDOPRIL
     Indication: Hypertension
     Dosage: UNIT DOSE: 4 MG, FREQUENCY TIME-1 DAY, THERAPY START DATE: ASKU
     Dates: end: 20211130
  5. CLOMIPRAMINE HYDROCHLORIDE [Suspect]
     Active Substance: CLOMIPRAMINE HYDROCHLORIDE
     Indication: Mixed anxiety and depressive disorder
     Dosage: UNIT DOSE: 75 MG, FREQUENCY TIME-1 DAY
     Dates: start: 20210826
  6. LACTULOSE [Concomitant]
     Active Substance: LACTULOSE
     Indication: Product used for unknown indication
     Dosage: UNIT DOSE: 40 G, FREQUENCY TIME-1 DAY, THERAPY START DATE: ASKU
  7. PRAVASTATIN SODIUM [Concomitant]
     Active Substance: PRAVASTATIN SODIUM
     Indication: Product used for unknown indication
     Dosage: UNIT DOSE: 10 G, FREQUENCY TIME-1 DAY, THERAPY START DATE: ASKU
  8. TRANXENE [Concomitant]
     Active Substance: CLORAZEPATE DIPOTASSIUM
     Indication: Product used for unknown indication
     Dosage: UNIT DOSE: 15 MG, FREQUENCY TIME-1 DAY,STRENGTH : 15 MG
     Dates: start: 20210909
  9. ASCORBIC ACID [Concomitant]
     Active Substance: ASCORBIC ACID
     Indication: Product used for unknown indication
     Dosage: UNIT DOSE: 1 DF, FREQUENCY TIME-1 DAY, DURATION-122 DAYS
     Dates: start: 20211105, end: 20220307

REACTIONS (1)
  - Inappropriate antidiuretic hormone secretion [Recovered/Resolved]

NARRATIVE: CASE EVENT DATE: 20211117
